FAERS Safety Report 8808885 (Version 1)
Quarter: 2012Q4

REPORT INFORMATION
  Report Type: 
  Country: BE (occurrence: BE)
  Receive Date: 20120926
  Receipt Date: 20120926
  Transmission Date: 20130627
  Serious: Yes (Life-Threatening, Hospitalization)
  Sender: FDA-Public Use
  Company Number: BE-SANOFI-AVENTIS-2012SA067226

PATIENT
  Age: 85 Year
  Sex: Female
  Weight: 53 kg

DRUGS (8)
  1. LASIX [Suspect]
     Indication: DRUG USE FOR UNKNOWN INDICATION
     Route: 048
  2. FLUDEX [Suspect]
     Indication: DRUG USE FOR UNKNOWN INDICATION
     Dosage: strength: 2.50mg
     Route: 048
  3. LEVOCETIRIZINE [Suspect]
     Indication: DRUG USE FOR UNKNOWN INDICATION
     Route: 048
  4. GALANTAMINE HYDROBROMIDE [Suspect]
     Indication: DRUG USE FOR UNKNOWN INDICATION
     Dosage: strength: 30.76 mg
     Route: 048
  5. BISOPROLOL [Suspect]
     Indication: DRUG USE FOR UNKNOWN INDICATION
     Dosage: strength: 5mg
     Route: 048
  6. APOCARD [Suspect]
     Indication: DRUG USE FOR UNKNOWN INDICATION
     Dosage: strength: 200mg
     Route: 048
  7. OMEPRAZOLE [Concomitant]
     Route: 048
  8. ALLOPURINOL [Concomitant]
     Route: 048

REACTIONS (5)
  - Cardiac arrest [Recovered/Resolved]
  - Torsade de pointes [Recovered/Resolved]
  - Arrhythmia [Recovered/Resolved]
  - Hypokalaemia [Recovered/Resolved]
  - Bradycardia [Recovered/Resolved]
